FAERS Safety Report 16910005 (Version 1)
Quarter: 2019Q4

REPORT INFORMATION
  Report Type: Spontaneous
  Country: US (occurrence: US)
  Receive Date: 20191011
  Receipt Date: 20191011
  Transmission Date: 20200122
  Serious: No
  Sender: FDA-Public Use
  Company Number: US-FRESENIUS MEDICAL CARE RENAL THERAPIES GROUP-FMC-1910-001333

PATIENT
  Sex: Male

DRUGS (3)
  1. DELFLEX WITH DEXTROSE 4.25% LOW MAGNESIUM LOW CALCIUM [Suspect]
     Active Substance: CALCIUM CHLORIDE\DEXTROSE\MAGNESIUM CHLORIDE\SODIUM CHLORIDE\SODIUM LACTATE
     Indication: END STAGE RENAL DISEASE
     Dosage: 6 EXCHANGES, FILL VOLUME = 1000 ML, LAST FILL VOLUME = 1000 ML, TOTAL VOLUME 6000 ML, FILL TIME 5MIN
     Route: 033
  2. DELFLEX WITH DEXTROSE 1.5% LOW MAGNESIUM LOW CALCIUM [Suspect]
     Active Substance: CALCIUM CHLORIDE\DEXTROSE\MAGNESIUM CHLORIDE\SODIUM CHLORIDE\SODIUM LACTATE
     Indication: END STAGE RENAL DISEASE
     Dosage: 6 EXCHANGES, FILL VOLUME = 1000 ML, LAST FILL VOLUME = 1000 ML, TOTAL VOLUME 6000 ML, FILL TIME 5MIN
     Route: 033
  3. DELFLEX WITH DEXTROSE 2.5% LOW MAGNESIUM LOW CALCIUM [Suspect]
     Active Substance: CALCIUM CHLORIDE\DEXTROSE\MAGNESIUM CHLORIDE\SODIUM CHLORIDE\SODIUM LACTATE
     Indication: END STAGE RENAL DISEASE
     Dosage: 6 EXCHANGES, FILL VOLUME = 1000 ML, LAST FILL VOLUME = 1000 ML, TOTAL VOLUME 6000 ML, FILL TIME 5MIN
     Route: 033

REACTIONS (2)
  - Constipation [Unknown]
  - Inguinal hernia [Recovering/Resolving]
